FAERS Safety Report 7766166 (Version 4)
Quarter: 2012Q4

REPORT INFORMATION
  Report Type: Report from Study
  Country: MX (occurrence: MX)
  Receive Date: 20110119
  Receipt Date: 20121107
  Transmission Date: 20130627
  Serious: Yes (Death, Other)
  Sender: FDA-Public Use
  Company Number: PHHO2011MX01182

PATIENT
  Age: 77 Year
  Sex: Male
  Weight: 48 kg

DRUGS (6)
  1. STI571 [Suspect]
     Indication: GASTROINTESTINAL STROMAL TUMOUR
     Dosage: 400 mg, BID
     Route: 048
  2. STI571 [Suspect]
     Dosage: 400 mg, QD
     Route: 048
  3. METOCLOPRAMIDE [Concomitant]
     Indication: PAIN
  4. PARACETAMOL [Concomitant]
     Indication: PAIN
  5. FUROSEMIDE [Concomitant]
     Indication: OEDEMA
  6. OMEPRAZOLE [Concomitant]

REACTIONS (4)
  - Enterocutaneous fistula [Unknown]
  - Gastrointestinal haemorrhage [Unknown]
  - Cardiac failure [Fatal]
  - Performance status decreased [Fatal]
